FAERS Safety Report 18119445 (Version 1)
Quarter: 2020Q3

REPORT INFORMATION
  Report Type: Spontaneous
  Country: US (occurrence: US)
  Receive Date: 20200806
  Receipt Date: 20200806
  Transmission Date: 20201103
  Serious: No
  Sender: FDA-Public Use
  Company Number: US-SA-2020SA204057

PATIENT

DRUGS (1)
  1. ALLEGRA ALLERGY [Suspect]
     Active Substance: FEXOFENADINE HYDROCHLORIDE
     Indication: SINUS PAIN
     Dosage: 1 DF, TOTAL

REACTIONS (2)
  - Sinus headache [Unknown]
  - Off label use [Unknown]

NARRATIVE: CASE EVENT DATE: 20200804
